FAERS Safety Report 14198675 (Version 1)
Quarter: 2017Q4

REPORT INFORMATION
  Report Type: Report from Study
  Country: JP (occurrence: JP)
  Receive Date: 20171117
  Receipt Date: 20171117
  Transmission Date: 20180321
  Serious: Yes (Other)
  Sender: FDA-Public Use
  Company Number: JP-ROCHE-GNE300257

PATIENT

DRUGS (2)
  1. ALTEPLASE. [Suspect]
     Active Substance: ALTEPLASE
     Indication: CEREBRAL ARTERY OCCLUSION
     Route: 040
  2. ALTEPLASE. [Suspect]
     Active Substance: ALTEPLASE
     Route: 042

REACTIONS (1)
  - Ischaemic stroke [Unknown]
